FAERS Safety Report 9663122 (Version 1)
Quarter: 2013Q4

REPORT INFORMATION
  Report Type: Report from Study
  Country: DE (occurrence: DE)
  Receive Date: 20131101
  Receipt Date: 20131101
  Transmission Date: 20140711
  Serious: Yes (Other)
  Sender: FDA-Public Use
  Company Number: DE-PFIZER INC-2013307052

PATIENT
  Age: 76 Year
  Sex: Female
  Weight: 68 kg

DRUGS (9)
  1. EXEMESTANE [Suspect]
  2. AFINITOR [Suspect]
     Indication: BREAST CANCER FEMALE
     Dosage: 10 MG DAILY
     Route: 048
     Dates: start: 20130108, end: 20130315
  3. AFINITOR [Suspect]
     Dosage: 10 MG EVERY 2 DAYS
     Route: 048
     Dates: start: 20130411, end: 20130508
  4. AFINITOR [Suspect]
     Dosage: 5 MG, 1X/DAY
     Route: 048
     Dates: start: 20130531
  5. BISOPROLOL [Concomitant]
     Dosage: 5 MG, UNK
     Dates: start: 20120425
  6. DELIX [Concomitant]
     Dosage: 2.5 MG, UNK
     Dates: start: 20120425
  7. L-THYROXIN [Concomitant]
     Dosage: 100 UG, UNK
     Dates: start: 200001
  8. CALCIVIT D3 [Concomitant]
     Dosage: 600 MG/400 IU
     Dates: start: 20130102
  9. XGEVA [Concomitant]
     Dosage: 120 MG, UNK
     Route: 042
     Dates: start: 20130102

REACTIONS (13)
  - Cystitis noninfective [Recovered/Resolved]
  - Dysuria [Recovered/Resolved]
  - Pollakiuria [Recovered/Resolved]
  - Neutropenia [Recovering/Resolving]
  - Stomatitis [Recovering/Resolving]
  - Diarrhoea [Unknown]
  - Mucosal inflammation [Recovering/Resolving]
  - Mucosal inflammation [Recovered/Resolved]
  - Stomatitis [Recovered/Resolved]
  - Mucosal inflammation [Not Recovered/Not Resolved]
  - Stomatitis [Not Recovered/Not Resolved]
  - Mucosal inflammation [Recovered/Resolved]
  - Stomatitis [Recovered/Resolved]
